FAERS Safety Report 10911458 (Version 3)
Quarter: 2015Q1

REPORT INFORMATION
  Report Type: Spontaneous
  Country: US (occurrence: US)
  Receive Date: 20150313
  Receipt Date: 20150331
  Transmission Date: 20150721
  Serious: No
  Sender: FDA-Public Use
  Company Number: US-AMGEN-USASP2015022649

PATIENT

DRUGS (8)
  1. REMICADE [Suspect]
     Active Substance: INFLIXIMAB
     Indication: PRODUCT USED FOR UNKNOWN INDICATION
     Dosage: UNK
     Route: 065
  2. HUMIRA [Suspect]
     Active Substance: ADALIMUMAB
     Indication: PRODUCT USED FOR UNKNOWN INDICATION
     Dosage: UNK
     Route: 065
  3. ARMOUR THYROID [Concomitant]
     Active Substance: THYROID, PORCINE\THYROID, UNSPECIFIED
     Dosage: UNK
  4. ENBREL [Suspect]
     Active Substance: ETANERCEPT
     Indication: PRODUCT USED FOR UNKNOWN INDICATION
     Dosage: UNK
     Route: 065
  5. NALTREXONE [Concomitant]
     Active Substance: NALTREXONE
     Dosage: 6 MG AT BEDTIME
  6. PREDNISONE. [Concomitant]
     Active Substance: PREDNISONE
     Dosage: 1 MG, DAILY
  7. METAXALONE. [Concomitant]
     Active Substance: METAXALONE
     Dosage: UNK
  8. SIMPONI [Concomitant]
     Active Substance: GOLIMUMAB
     Dosage: UNK

REACTIONS (11)
  - Fatigue [Unknown]
  - Malaise [Unknown]
  - Discomfort [Unknown]
  - Infection [Unknown]
  - Drug specific antibody present [Unknown]
  - Urticaria [Unknown]
  - Condition aggravated [Unknown]
  - Activities of daily living impaired [Unknown]
  - Migraine [Unknown]
  - Drug ineffective [Unknown]
  - Hypersensitivity [Unknown]
